FAERS Safety Report 6945263 (Version 4)
Quarter: 2020Q3

REPORT INFORMATION
  Report Type: Report from Study
  Country: US (occurrence: US)
  Receive Date: 20090319
  Receipt Date: 20090415
  Transmission Date: 20201105
  Serious: Yes (Death)
  Sender: FDA-Public Use
  Company Number: US-ROCHE-621730

PATIENT
  Age: 99 Year
  Sex: Female
  Weight: 47.6 kg

DRUGS (1)
  1. IBANDRONIC ACID. [Suspect]
     Active Substance: IBANDRONIC ACID
     Indication: PRODUCT USED FOR UNKNOWN INDICATION
     Dosage: FORM:PILLS
     Route: 065

REACTIONS (2)
  - Failure to thrive [Fatal]
  - Elderly [Fatal]
